FAERS Safety Report 7055378-X (Version None)
Quarter: 2010Q4

REPORT INFORMATION
  Report Type: 
  Country: None (occurrence: None)
  Receive Date: 20101021
  Receipt Date: 20101008
  Transmission Date: 20110411
  Serious: Yes (Other)
  Sender: FDA-Public Use
  Company Number: PHHY2010DE54069

PATIENT
  Sex: Female
  Weight: 78 kg

DRUGS (4)
  1. ZOMETA [Suspect]
     Indication: PROPHYLAXIS
     Dosage: 4 MG, EVERY SIX MONTHS
     Route: 042
     Dates: start: 20100709
  2. INFLUENZA VACCINE [Concomitant]
     Dosage: UNK
     Dates: start: 20100914
  3. TAMOXIFEN CITRATE [Concomitant]
     Dosage: UNK
     Dates: start: 20100901
  4. FEMARA [Concomitant]
     Dosage: UNK
     Dates: start: 20100901

REACTIONS (19)
  - ACUTE PHASE REACTION [None]
  - BACK PAIN [None]
  - BLOOD PRESSURE INCREASED [None]
  - BONE PAIN [None]
  - BREAST SWELLING [None]
  - CHILLS [None]
  - DECREASED APPETITE [None]
  - DYSPHONIA [None]
  - HYPERHIDROSIS [None]
  - LACRIMATION INCREASED [None]
  - MUSCULOSKELETAL PAIN [None]
  - NAUSEA [None]
  - PAIN IN EXTREMITY [None]
  - PAIN IN JAW [None]
  - PYREXIA [None]
  - SKIN DISCOLOURATION [None]
  - SLEEP DISORDER [None]
  - SWELLING FACE [None]
  - VISUAL IMPAIRMENT [None]
